FAERS Safety Report 20447570 (Version 4)
Quarter: 2022Q2

REPORT INFORMATION
  Report Type: Spontaneous
  Country: PT (occurrence: PT)
  Receive Date: 20220209
  Receipt Date: 20220421
  Transmission Date: 20220721
  Serious: Yes (Hospitalization, Disabling, Other)
  Sender: FDA-Public Use
  Company Number: PT-002147023-NVSC2022PT013359

PATIENT
  Age: 70 Year
  Sex: Male

DRUGS (1)
  1. METFORMIN [Suspect]
     Active Substance: METFORMIN HYDROCHLORIDE
     Indication: Type 2 diabetes mellitus
     Dosage: 850 MILLIGRAM, 3 TIMES A DAY
     Route: 048

REACTIONS (3)
  - Myelopathy [Recovering/Resolving]
  - Neuropathy vitamin B12 deficiency [Recovering/Resolving]
  - Vitamin B12 deficiency [Recovered/Resolved]

NARRATIVE: CASE EVENT DATE: 20141101
